FAERS Safety Report 4729390-7 (Version None)
Quarter: 2005Q3

REPORT INFORMATION
  Report Type: 
  Country: None (occurrence: None)
  Receive Date: 20050728
  Receipt Date: 20050518
  Transmission Date: 20060218
  Serious: Yes (Other)
  Sender: FDA-Public Use
  Company Number: 200504786

PATIENT
  Age: 51 Year
  Sex: Female

DRUGS (6)
  1. RESTASIS [Suspect]
     Indication: DRY EYE
     Dosage: 2 DROP BID EYE
     Dates: start: 20050209
  2. ALPHAGAN P [Concomitant]
  3. LUMIGAN [Concomitant]
  4. LEVALBUTEROL [Concomitant]
  5. PRED FORTE [Concomitant]
  6. DIAMOX [Concomitant]

REACTIONS (8)
  - DRUG HYPERSENSITIVITY [None]
  - EYE INFLAMMATION [None]
  - EYE IRRITATION [None]
  - INTRAOCULAR PRESSURE INCREASED [None]
  - IRITIS [None]
  - OCULAR HYPERAEMIA [None]
  - PHOTOPHOBIA [None]
  - VISION BLURRED [None]
